FAERS Safety Report 5280332-8 (Version None)
Quarter: 2007Q1

REPORT INFORMATION
  Report Type: 
  Country: None (occurrence: None)
  Receive Date: 20070329
  Receipt Date: 20070315
  Transmission Date: 20070707
  Serious: Yes (Hospitalization)
  Sender: FDA-Public Use
  Company Number: PHRM2003FR00679

PATIENT
  Age: 53 Year
  Sex: Female
  Weight: 60 kg

DRUGS (1)
  1. GLEEVEC [Suspect]
     Indication: CHRONIC MYELOID LEUKAEMIA
     Dosage: 600MG/DAY
     Route: 048
     Dates: start: 20010602

REACTIONS (4)
  - BACK PAIN [None]
  - METASTASES TO BONE [None]
  - METASTASES TO LIVER [None]
  - NECK PAIN [None]
